FAERS Safety Report 25837746 (Version 2)
Quarter: 2025Q3

REPORT INFORMATION
  Report Type: Spontaneous
  Country: US (occurrence: US)
  Receive Date: 20250923
  Receipt Date: 20250924
  Transmission Date: 20251021
  Serious: Yes (Death)
  Sender: PFIZER
  Company Number: US-PFIZER INC-202500187190

PATIENT
  Age: 86 Year
  Sex: Male

DRUGS (1)
  1. XELJANZ [Suspect]
     Active Substance: TOFACITINIB CITRATE

REACTIONS (1)
  - Death [Fatal]

NARRATIVE: CASE EVENT DATE: 20250901
